FAERS Safety Report 21756887 (Version 2)
Quarter: 2023Q1

REPORT INFORMATION
  Report Type: Report from Study
  Country: FR (occurrence: None)
  Receive Date: 20221220
  Receipt Date: 20230118
  Transmission Date: 20230418
  Serious: Yes (Death, Other)
  Sender: FDA-Public Use
  Company Number: 2022A406342

PATIENT
  Age: 4079 Week
  Sex: Male
  Weight: 69.7 kg

DRUGS (5)
  1. EVUSHELD [Suspect]
     Active Substance: CILGAVIMAB\TIXAGEVIMAB
     Indication: COVID-19
     Dosage: ONCE/SINGLE ADMINISTRATION
     Route: 030
     Dates: start: 20220113
  2. EVUSHELD [Suspect]
     Active Substance: CILGAVIMAB\TIXAGEVIMAB
     Indication: COVID-19
     Dosage: ONCE/SINGLE ADMINISTRATION
     Route: 030
     Dates: start: 20220711
  3. NEORAL [Concomitant]
     Active Substance: CYCLOSPORINE
  4. CELLCEPT [Concomitant]
     Active Substance: MYCOPHENOLATE MOFETIL
  5. FUROSEMIDE [Concomitant]
     Active Substance: FUROSEMIDE
     Dosage: INCREASED FROM 250 TO 375 MG

REACTIONS (13)
  - General physical health deterioration [Fatal]
  - Hypoglycaemia [Unknown]
  - Skin disorder [Unknown]
  - Faeces discoloured [Unknown]
  - Abdominal distension [Unknown]
  - International normalised ratio increased [Unknown]
  - Hyponatraemia [Unknown]
  - Bladder dilatation [Unknown]
  - Diarrhoea [Recovering/Resolving]
  - Vomiting [Unknown]
  - Urinary retention [Unknown]
  - Hypoalbuminaemia [Unknown]
  - C-reactive protein increased [Unknown]

NARRATIVE: CASE EVENT DATE: 20220831
